FAERS Safety Report 5757296-3 (Version None)
Quarter: 2008Q2

REPORT INFORMATION
  Report Type: 
  Country: None (occurrence: None)
  Receive Date: 20080603
  Receipt Date: 20080528
  Transmission Date: 20081010
  Serious: Yes (Other)
  Sender: FDA-Public Use
  Company Number: JP-ASTRAZENECA-2008AP02185

PATIENT
  Age: 26624 Day
  Sex: Female
  Weight: 56 kg

DRUGS (4)
  1. CRESTOR [Suspect]
     Indication: LIPIDS ABNORMAL
     Route: 048
     Dates: start: 20080319, end: 20080320
  2. FOIPAN [Suspect]
     Indication: PANCREATITIS CHRONIC
     Route: 048
     Dates: start: 20080319, end: 20080320
  3. ALLOZYM [Suspect]
     Indication: HYPERURICAEMIA
     Route: 048
     Dates: start: 20080319, end: 20080320
  4. CELECOX [Concomitant]
     Indication: OSTEOARTHRITIS
     Route: 048
     Dates: start: 20080206

REACTIONS (3)
  - ERYTHEMA [None]
  - OEDEMA PERIPHERAL [None]
  - PRURITUS [None]
